FAERS Safety Report 6677975-3 (Version None)
Quarter: 2010Q2

REPORT INFORMATION
  Report Type: 
  Country: None (occurrence: None)
  Receive Date: 20100412
  Receipt Date: 20100331
  Transmission Date: 20101027
  Serious: No
  Sender: FDA-Public Use
  Company Number: CA-ELI_LILLY_AND_COMPANY-CA201002006616

PATIENT
  Age: 39 Year
  Sex: Female
  Weight: 99.5 kg

DRUGS (5)
  1. CYMBALTA [Suspect]
     Indication: DEPRESSION
     Dosage: 60 MG, UNKNOWN
     Route: 065
     Dates: start: 20100107, end: 20100219
  2. HYDROMORPHONE HCL [Concomitant]
     Indication: PAIN
  3. LYRICA [Concomitant]
     Indication: PAIN
  4. SYNTHROID [Concomitant]
     Indication: HYPOTHYROIDISM
  5. EMTEC-30 [Concomitant]
     Dosage: UNK, UNK

REACTIONS (3)
  - ABDOMINAL PAIN UPPER [None]
  - LIVER FUNCTION TEST ABNORMAL [None]
  - NAUSEA [None]
